FAERS Safety Report 8491132 (Version 5)
Quarter: 2013Q1

REPORT INFORMATION
  Report Type: Spontaneous
  Country: US (occurrence: None)
  Receive Date: 20120327
  Receipt Date: 20130325
  Transmission Date: 20140127
  Serious: Yes (Hospitalization)
  Sender: FDA-Public Use
  Company Number: 2012030112

PATIENT
  Age: 59 Year
  Sex: Male

DRUGS (20)
  1. TORSEMIDE [Suspect]
  2. SAXAGLIPTIN / PLACEBO [Suspect]
     Indication: TYPE 2 DIABETES MELLITUS
     Dosage: (2 IN 1 D)
     Dates: start: 20110325, end: 20110708
  3. FUROSEMIDE (FUROSEMIDE) [Suspect]
  4. SPIRONOLACTONE [Suspect]
  5. CARVEDILOL [Suspect]
  6. ASPIRIN (ACETYLSALICYLIC ACID) [Concomitant]
  7. EZETIMIBE [Concomitant]
  8. FIBRIC ACID (FIBRIC ACID) [Concomitant]
  9. CHOLECALCIFEROL (CHOLECALCIFEROL) [Concomitant]
  10. CLONAZEPAM (CLONAZEPAM) (CLONAZEPAM) [Concomitant]
  11. CLOPIDOGREL (CLOPIDOGREL) [Concomitant]
  12. FENOFIBRATE (FENOFIBRATE) (FENOFIBRATE) [Concomitant]
  13. FOLIC ACID (FOLIC ACID) [Concomitant]
  14. GOLYTELY (POLYETHYLENE GLYCOL 3320) [Concomitant]
  15. AMITIZA (LUBIPROSTONE) [Concomitant]
  16. NITROGLYCERIN (NITROGLYCERIN) [Concomitant]
  17. SIMVASTATIN (SIMVASTATIN) [Concomitant]
  18. TEMAZEPAM (TEMAZEPAM) [Concomitant]
  19. ACETAMINOPHEN (ACETAMINOPHEN) [Concomitant]
  20. AMLODIPINE (AMLODIPINE) [Suspect]

REACTIONS (11)
  - Hypotension [None]
  - Condition aggravated [None]
  - Dilatation ventricular [None]
  - Left atrial dilatation [None]
  - Aortic valve sclerosis [None]
  - Aortic valve incompetence [None]
  - Hepatic steatosis [None]
  - Hypovolaemia [None]
  - Renal failure acute [None]
  - Irritable bowel syndrome [None]
  - Infection [None]
